FAERS Safety Report 23079292 (Version 1)
Quarter: 2023Q4

REPORT INFORMATION
  Report Type: Spontaneous
  Country: CN (occurrence: CN)
  Receive Date: 20231018
  Receipt Date: 20231018
  Transmission Date: 20240109
  Serious: Yes (Hospitalization)
  Sender: FDA-Public Use
  Company Number: CN-PFIZER INC-PV202300170547

PATIENT
  Age: 47 Year
  Sex: Male
  Weight: 47 kg

DRUGS (1)
  1. SUNITINIB MALATE [Suspect]
     Active Substance: SUNITINIB MALATE
     Indication: Gastrointestinal stromal tumour
     Dosage: 37.5 MG, 1X/DAY
     Route: 048
     Dates: start: 20230208, end: 20230913

REACTIONS (3)
  - Myelosuppression [Recovering/Resolving]
  - Decreased appetite [Unknown]
  - Hiccups [Unknown]

NARRATIVE: CASE EVENT DATE: 20231001
